FAERS Safety Report 6486939-4 (Version None)
Quarter: 2009Q4

REPORT INFORMATION
  Report Type: 
  Country: None (occurrence: None)
  Receive Date: 20091209
  Receipt Date: 20091209
  Transmission Date: 20100525
  Serious: Yes (Hospitalization)
  Sender: FDA-Public Use
  Company Number: None

PATIENT
  Sex: Male
  Weight: 94.3482 kg

DRUGS (1)
  1. LAPATINIB [Suspect]
     Indication: BLADDER CANCER
     Dosage: 1000MG DAILY PO
     Route: 048
     Dates: start: 20091120, end: 20091205

REACTIONS (3)
  - ARRHYTHMIA [None]
  - HEADACHE [None]
  - PYREXIA [None]
